FAERS Safety Report 19395594 (Version 10)
Quarter: 2022Q3

REPORT INFORMATION
  Report Type: Report from Study
  Country: CN (occurrence: CN)
  Receive Date: 20210609
  Receipt Date: 20220812
  Transmission Date: 20221026
  Serious: Yes (Hospitalization)
  Sender: FDA-Public Use
  Company Number: CN-GILEAD-2021-0534478

PATIENT
  Age: 51 Year
  Sex: Female
  Weight: 86 kg

DRUGS (12)
  1. SACITUZUMAB GOVITECAN [Suspect]
     Active Substance: SACITUZUMAB GOVITECAN
     Indication: HER2 negative breast cancer
     Dosage: 860 MG, ONCE
     Route: 042
     Dates: start: 20210422, end: 20210422
  2. SACITUZUMAB GOVITECAN [Suspect]
     Active Substance: SACITUZUMAB GOVITECAN
     Dosage: 875 MG, ONCE
     Route: 042
     Dates: start: 20210526, end: 20210609
  3. SACITUZUMAB GOVITECAN [Suspect]
     Active Substance: SACITUZUMAB GOVITECAN
     Dosage: 875 MG, ONCE
     Route: 042
     Dates: start: 20210623
  4. NORFLOXACIN [Concomitant]
     Active Substance: NORFLOXACIN
     Indication: Product used for unknown indication
     Dosage: UNK
     Dates: start: 20210531, end: 20210602
  5. NORFLOXACIN [Concomitant]
     Active Substance: NORFLOXACIN
     Indication: Diarrhoea
     Dosage: 400 MG, BID
     Route: 048
     Dates: start: 20210531, end: 20210601
  6. IBUPROFEN [Concomitant]
     Active Substance: IBUPROFEN
     Indication: Product used for unknown indication
     Dosage: 300 MG, QD
     Route: 048
     Dates: start: 20210526, end: 20210526
  7. IBUPROFEN [Concomitant]
     Active Substance: IBUPROFEN
     Indication: Upper respiratory tract infection
     Dosage: 300 MG, BID
     Route: 048
     Dates: start: 20210601, end: 20210601
  8. IBUPROFEN [Concomitant]
     Active Substance: IBUPROFEN
     Dosage: UNK
     Dates: start: 20210601, end: 20210601
  9. IBUPROFEN [Concomitant]
     Active Substance: IBUPROFEN
     Dosage: 300 MG, BID
     Route: 048
     Dates: start: 20210601, end: 20210601
  10. CIMETIDINE [Concomitant]
     Active Substance: CIMETIDINE
     Indication: Product used for unknown indication
     Dosage: 200 MG, QD
     Route: 042
     Dates: start: 20210526, end: 20210526
  11. ZINC GLUCONATE [Concomitant]
     Active Substance: ZINC GLUCONATE
     Indication: Product used for unknown indication
     Dosage: 4 MG, QD
     Route: 048
     Dates: start: 20210602, end: 20210602
  12. ZINC GLUCONATE [Concomitant]
     Active Substance: ZINC GLUCONATE
     Indication: Upper respiratory tract infection

REACTIONS (1)
  - Haemorrhoids [Recovered/Resolved]

NARRATIVE: CASE EVENT DATE: 20210603
